FAERS Safety Report 9057191 (Version 4)
Quarter: 2014Q1

REPORT INFORMATION
  Report Type: Report from Study
  Country: IN (occurrence: IN)
  Receive Date: 20130131
  Receipt Date: 20140319
  Transmission Date: 20141002
  Serious: Yes (Hospitalization)
  Sender: FDA-Public Use
  Company Number: IN-BRISTOL-MYERS SQUIBB COMPANY-17315185

PATIENT
  Age: 49 Year
  Sex: Female
  Weight: 63 kg

DRUGS (3)
  1. CARBOPLATIN [Suspect]
     Indication: OVARIAN CANCER
     Dosage: 5TH CYCLE ON 03-FEB-2012
     Route: 042
     Dates: start: 20111103
  2. PACLITAXEL [Suspect]
     Indication: OVARIAN CANCER
     Dosage: 5TH CYCLE ON 03-FEB-2012
     Route: 042
     Dates: start: 20111103
  3. BEVACIZUMAB [Suspect]
     Indication: OVARIAN CANCER
     Dosage: 1DF:900 DOSE UNKNOWN;5TH CYCLE ON 03-FEB-2012
     Route: 042
     Dates: start: 20111124

REACTIONS (1)
  - Small intestinal obstruction [Recovered/Resolved]
